FAERS Safety Report 8900242 (Version 2)
Quarter: 2013Q1

REPORT INFORMATION
  Report Type: Spontaneous
  Country: US (occurrence: US)
  Receive Date: 20121109
  Receipt Date: 20130125
  Transmission Date: 20140127
  Serious: Yes (Other)
  Sender: FDA-Public Use
  Company Number: US-BAYER-2012-114843

PATIENT
  Age: 37 Year
  Sex: Female

DRUGS (1)
  1. MIRENA [Suspect]
     Indication: CONTRACEPTION
     Dosage: 20 MCG/24HR, CONT
     Route: 015
     Dates: start: 20100526, end: 201204

REACTIONS (11)
  - Genital haemorrhage [None]
  - Headache [None]
  - Abdominal distension [None]
  - Alopecia [None]
  - Acne [None]
  - Anxiety [None]
  - Irritability [None]
  - Arthralgia [None]
  - Fatigue [None]
  - Pruritus [None]
  - Amenorrhoea [Recovered/Resolved]
